FAERS Safety Report 17443699 (Version 1)
Quarter: 2020Q1

REPORT INFORMATION
  Report Type: Spontaneous
  Country: FR (occurrence: FR)
  Receive Date: 20200221
  Receipt Date: 20200221
  Transmission Date: 20200409
  Serious: Yes (Hospitalization)
  Sender: FDA-Public Use
  Company Number: FR-BIOGEN-2020BI00839511

PATIENT
  Age: 35 Year
  Sex: Female
  Weight: 55 kg

DRUGS (1)
  1. TYSABRI [Suspect]
     Active Substance: NATALIZUMAB
     Indication: MULTIPLE SCLEROSIS
     Route: 042
     Dates: start: 20191108, end: 20191108

REACTIONS (3)
  - Cholestasis [Recovered/Resolved]
  - Jaundice [Recovered/Resolved with Sequelae]
  - Cell death [Recovered/Resolved]

NARRATIVE: CASE EVENT DATE: 20191126
